FAERS Safety Report 8162021-5 (Version None)
Quarter: 2012Q1

REPORT INFORMATION
  Report Type: 
  Country: None (occurrence: None)
  Receive Date: 20120224
  Receipt Date: 20110602
  Transmission Date: 20120608
  Serious: No
  Sender: FDA-Public Use
  Company Number: US-BRISTOL-MYERS SQUIBB COMPANY-15718323

PATIENT
  Sex: Female

DRUGS (2)
  1. GLYBURIDE [Suspect]
  2. METFORMIN HCL [Suspect]

REACTIONS (3)
  - DIABETES MELLITUS INADEQUATE CONTROL [None]
  - ECZEMA [None]
  - DIARRHOEA [None]
